FAERS Safety Report 10157078 (Version 1)
Quarter: 2014Q2

REPORT INFORMATION
  Report Type: Spontaneous
  Country: US (occurrence: US)
  Receive Date: 20140507
  Receipt Date: 20140507
  Transmission Date: 20141212
  Serious: No
  Sender: FDA-Public Use
  Company Number: US-PFIZER INC-2014122715

PATIENT
  Age: 56 Year
  Sex: Male

DRUGS (1)
  1. INLYTA [Suspect]
     Indication: RENAL CANCER
     Dosage: 4 MG (1 MG X 4 TABS), 2X/DAY
     Dates: start: 20140215

REACTIONS (3)
  - Fatigue [Unknown]
  - Constipation [Unknown]
  - Hypertension [Unknown]
